FAERS Safety Report 15681726 (Version 1)
Quarter: 2018Q4

REPORT INFORMATION
  Report Type: Spontaneous
  Country: ES (occurrence: ES)
  Receive Date: 20181203
  Receipt Date: 20181203
  Transmission Date: 20190205
  Serious: Yes (Hospitalization)
  Sender: FDA-Public Use
  Company Number: ES-INCYTE CORPORATION-2018IN012117

PATIENT

DRUGS (2)
  1. MASTICAL D [Concomitant]
     Indication: OSTEOPOROSIS
     Dosage: 1 ?G/L, QD
     Route: 048
     Dates: start: 20171220
  2. JAKAVI [Suspect]
     Active Substance: RUXOLITINIB
     Indication: CHRONIC GRAFT VERSUS HOST DISEASE
     Dosage: 5 MG, Q12H
     Route: 048
     Dates: start: 20171122

REACTIONS (2)
  - Arthritis [Recovered/Resolved]
  - Arthropathy [Recovered/Resolved]

NARRATIVE: CASE EVENT DATE: 20180322
